FAERS Safety Report 6516751-9 (Version None)
Quarter: 2009Q4

REPORT INFORMATION
  Report Type: 
  Country: None (occurrence: None)
  Receive Date: 20091223
  Receipt Date: 20091223
  Transmission Date: 20100525
  Serious: Yes (Hospitalization)
  Sender: FDA-Public Use
  Company Number: CA-JNJFOC-20091108032

PATIENT
  Sex: Male
  Weight: 120 kg

DRUGS (9)
  1. USTEKINUMAB [Suspect]
     Route: 058
  2. USTEKINUMAB [Suspect]
     Route: 058
  3. USTEKINUMAB [Suspect]
     Route: 058
  4. USTEKINUMAB [Suspect]
     Route: 058
  5. USTEKINUMAB [Suspect]
     Route: 058
  6. USTEKINUMAB [Suspect]
     Route: 058
  7. USTEKINUMAB [Suspect]
     Indication: PSORIASIS
     Route: 058
  8. PLACEBO [Suspect]
  9. PLACEBO [Suspect]
     Indication: PSORIASIS

REACTIONS (2)
  - H1N1 INFLUENZA [None]
  - RESPIRATORY FAILURE [None]
